FAERS Safety Report 15265119 (Version 2)
Quarter: 2018Q3

REPORT INFORMATION
  Report Type: Spontaneous
  Country: US (occurrence: US)
  Receive Date: 20180810
  Receipt Date: 20180828
  Transmission Date: 20181010
  Serious: Yes (Other)
  Sender: FDA-Public Use
  Company Number: US-MYLANLABS-2018M1060963

PATIENT
  Sex: Female

DRUGS (9)
  1. CARBAMAZEPINE. [Suspect]
     Active Substance: CARBAMAZEPINE
     Indication: BALTIC MYOCLONIC EPILEPSY
     Dosage: 400 MG, QD
  2. LACOSAMIDE. [Concomitant]
     Active Substance: LACOSAMIDE
     Indication: BALTIC MYOCLONIC EPILEPSY
     Dosage: 400 MG, QD
  3. VALPROIC ACID. [Concomitant]
     Active Substance: VALPROIC ACID
     Indication: BALTIC MYOCLONIC EPILEPSY
     Dosage: 2000 MG, QD
     Route: 042
  4. PERAMPANEL [Suspect]
     Active Substance: PERAMPANEL
     Indication: BALTIC MYOCLONIC EPILEPSY
     Dosage: UNK
  5. ACETYLCYSTEINE. [Suspect]
     Active Substance: ACETYLCYSTEINE
     Indication: BALTIC MYOCLONIC EPILEPSY
     Dosage: UNK
  6. LEVETIRACETAM. [Concomitant]
     Active Substance: LEVETIRACETAM
     Indication: BALTIC MYOCLONIC EPILEPSY
     Dosage: 3000 MG, QD
     Route: 042
  7. TOPIRAMATE. [Suspect]
     Active Substance: TOPIRAMATE
     Indication: BALTIC MYOCLONIC EPILEPSY
     Dosage: 400 MG, QD (IN DIVIDED DOSES)
  8. PHENOBARBITAL. [Suspect]
     Active Substance: PHENOBARBITAL
     Indication: BALTIC MYOCLONIC EPILEPSY
     Dosage: UNK
  9. CLOBAZAM [Suspect]
     Active Substance: CLOBAZAM
     Indication: BALTIC MYOCLONIC EPILEPSY
     Dosage: UNK

REACTIONS (5)
  - Nausea [Unknown]
  - Malaise [Unknown]
  - Drug intolerance [Unknown]
  - Drug ineffective [Unknown]
  - Rebound effect [Unknown]
